FAERS Safety Report 4692964-6 (Version None)
Quarter: 2005Q2

REPORT INFORMATION
  Report Type: 
  Country: None (occurrence: None)
  Receive Date: 20050617
  Receipt Date: 20050606
  Transmission Date: 20051028
  Serious: Yes (Hospitalization)
  Sender: FDA-Public Use
  Company Number: EMADSS2003000970

PATIENT
  Age: 67 Year
  Sex: Male

DRUGS (3)
  1. REMICADE [Suspect]
     Indication: CROHN'S DISEASE
     Route: 041
  2. REMICADE [Suspect]
     Indication: ENTEROCUTANEOUS FISTULA
     Route: 041
  3. AZATHIOPRINE [Concomitant]
     Route: 065

REACTIONS (5)
  - APHASIA [None]
  - DEPRESSED LEVEL OF CONSCIOUSNESS [None]
  - LISTERIOSIS [None]
  - SEPSIS [None]
  - URINARY TRACT INFECTION [None]
